FAERS Safety Report 13118079 (Version 1)
Quarter: 2017Q1

REPORT INFORMATION
  Report Type: Not Available
  Country: PT (occurrence: PT)
  Receive Date: 20170116
  Receipt Date: 20170116
  Transmission Date: 20170428
  Serious: Yes (Other)
  Sender: FDA-Public Use
  Company Number: PT-IDTAUSTRALIA-2017-PT-000001

PATIENT
  Age: 85 Year
  Sex: Male

DRUGS (3)
  1. CIPROFLOXACIN (NON-SPECIFIC) [Suspect]
     Active Substance: CIPROFLOXACIN
     Route: 065
  2. HYDROXYZINE [Concomitant]
     Active Substance: HYDROXYZINE HYDROCHLORIDE
     Dosage: 25 MG DAILY
     Route: 065
  3. ALPRAZOLAM. [Concomitant]
     Active Substance: ALPRAZOLAM
     Dosage: 0.25 MG DAILY
     Route: 065

REACTIONS (2)
  - Kounis syndrome [Recovered/Resolved]
  - Bundle branch block right [None]
